FAERS Safety Report 7590324-1 (Version None)
Quarter: 2011Q3

REPORT INFORMATION
  Report Type: 
  Country: None (occurrence: None)
  Receive Date: 20110705
  Receipt Date: 20110624
  Transmission Date: 20111222
  Serious: Yes (Hospitalization)
  Sender: FDA-Public Use
  Company Number: BR-SANOFI-AVENTIS-2011SA040534

PATIENT
  Age: 85 Year
  Sex: Female

DRUGS (12)
  1. MONOCORDIL [Concomitant]
     Route: 048
     Dates: start: 20110607
  2. ASPIRIN [Concomitant]
     Indication: ANTICOAGULANT THERAPY
     Route: 048
     Dates: start: 20110607
  3. ALLOPURINOL [Concomitant]
     Route: 048
     Dates: start: 20110607
  4. DIGOXIN [Concomitant]
     Route: 048
     Dates: start: 20110607
  5. CARVEDILOL [Concomitant]
     Route: 048
     Dates: start: 20110607
  6. SOLOSTAR [Suspect]
  7. NOVORAPID [Concomitant]
     Indication: TYPE 2 DIABETES MELLITUS
     Route: 058
     Dates: start: 20100101, end: 20110101
  8. ZOCOR [Concomitant]
     Route: 048
     Dates: start: 20110607
  9. LANTUS [Suspect]
     Indication: TYPE 2 DIABETES MELLITUS
     Route: 058
     Dates: end: 20110607
  10. HYDROCHLOROTHIAZIDE [Concomitant]
     Route: 048
     Dates: start: 20110607
  11. WARFARIN SODIUM [Concomitant]
     Indication: ANTICOAGULANT THERAPY
     Route: 048
     Dates: start: 20080101, end: 20110621
  12. ALDACTONE [Concomitant]
     Route: 048
     Dates: start: 20110607

REACTIONS (2)
  - CARDIAC DISORDER [None]
  - FEELING ABNORMAL [None]
